FAERS Safety Report 9034147 (Version 1)
Quarter: 2013Q1

REPORT INFORMATION
  Report Type: Spontaneous
  Country: US (occurrence: None)
  Receive Date: 20130116
  Receipt Date: 20130116
  Transmission Date: 20140127
  Serious: No
  Sender: FDA-Public Use
  Company Number: None

PATIENT
  Age: 45 Year
  Sex: Male
  Weight: 108.8 kg

DRUGS (2)
  1. VANCOMYCIN [Suspect]
     Indication: POST PROCEDURAL INFECTION
     Route: 042
     Dates: start: 20121107, end: 20121114
  2. VANCOMYCIN [Suspect]
     Indication: POST PROCEDURAL INFECTION
     Route: 042
     Dates: start: 20121107, end: 20121114

REACTIONS (1)
  - Tinnitus [None]
